FAERS Safety Report 6253331-7 (Version None)
Quarter: 2009Q3

REPORT INFORMATION
  Report Type: 
  Country: None (occurrence: None)
  Receive Date: 20090701
  Receipt Date: 20090619
  Transmission Date: 20100115
  Serious: Yes (Disabling, Congenital Anomaly, Other)
  Sender: FDA-Public Use
  Company Number: PHHY2009LT25349

PATIENT
  Sex: Male

DRUGS (1)
  1. CARBAMAZEPINE [Suspect]
     Dosage: UNK
     Route: 064

REACTIONS (12)
  - CLEFT LIP AND PALATE [None]
  - CLINODACTYLY [None]
  - CONVULSION [None]
  - CRYPTORCHISM [None]
  - CYTOGENETIC ABNORMALITY [None]
  - DYSMORPHISM [None]
  - INGUINAL HERNIA [None]
  - LYMPHOEDEMA [None]
  - MENTAL RETARDATION [None]
  - MYELODYSPLASTIC SYNDROME [None]
  - PENIS DISORDER [None]
  - VENTRICULAR SEPTAL DEFECT [None]
